FAERS Safety Report 4687389-3 (Version None)
Quarter: 2005Q3

REPORT INFORMATION
  Report Type: 
  Country: None (occurrence: None)
  Receive Date: 20050608
  Receipt Date: 20050520
  Transmission Date: 20060218
  Serious: Yes (Hospitalization)
  Sender: FDA-Public Use
  Company Number: DSA_26465_2005

PATIENT
  Age: 7 Year
  Sex: Male

DRUGS (2)
  1. ATIVAN [Suspect]
     Dosage: 1 MG Q DAY
  2. ADDERALL 5 [Suspect]
     Dosage: CAP

REACTIONS (3)
  - AGGRESSION [None]
  - ANXIETY [None]
  - PSYCHOTIC DISORDER [None]
